FAERS Safety Report 5940930-2 (Version None)
Quarter: 2008Q4

REPORT INFORMATION
  Report Type: 
  Country: None (occurrence: None)
  Receive Date: 20081104
  Receipt Date: 20081024
  Transmission Date: 20090506
  Serious: Yes (Hospitalization, Other)
  Sender: FDA-Public Use
  Company Number: PHEH2008US09565

PATIENT
  Age: 85 Year
  Sex: Female

DRUGS (6)
  1. RECLAST [Suspect]
     Indication: PELVIC FRACTURE
     Dosage: 5 MG, ONCE
     Dates: start: 20080829
  2. HYDROCHLOROTHIAZIDE [Suspect]
  3. ALLOPURINOL [Concomitant]
  4. SYNTHROID [Concomitant]
  5. INSULIN [Concomitant]
  6. PROTONIX [Concomitant]

REACTIONS (10)
  - AGITATION [None]
  - BLOOD SODIUM DECREASED [None]
  - DEHYDRATION [None]
  - DIABETES MELLITUS [None]
  - HYPOAESTHESIA ORAL [None]
  - ILEUS [None]
  - INAPPROPRIATE ANTIDIURETIC HORMONE SECRETION [None]
  - NAUSEA [None]
  - PAIN [None]
  - VOMITING [None]
